FAERS Safety Report 13988423 (Version 1)
Quarter: 2017Q3

REPORT INFORMATION
  Report Type: Spontaneous
  Country: DE (occurrence: DE)
  Receive Date: 20170919
  Receipt Date: 20170919
  Transmission Date: 20171128
  Serious: Yes (Hospitalization)
  Sender: FDA-Public Use
  Company Number: DE-009507513-1709DEU007409

PATIENT
  Age: 88 Year
  Sex: Female

DRUGS (4)
  1. GOLTOR 10 MG/10 MG TABLETTEN [Suspect]
     Active Substance: EZETIMIBE\SIMVASTATIN
     Dosage: STRENGTH: 10 MG / 10 MG
     Route: 048
     Dates: start: 201703
  2. PANTOPRAZOLE [Concomitant]
     Active Substance: PANTOPRAZOLE
  3. ASPIRIN PROTECT [Concomitant]
     Active Substance: ASPIRIN
  4. BISOPROLOL [Concomitant]
     Active Substance: BISOPROLOL

REACTIONS (2)
  - Dizziness [Not Recovered/Not Resolved]
  - Balance disorder [Not Recovered/Not Resolved]

NARRATIVE: CASE EVENT DATE: 201709
